FAERS Safety Report 7277586-5 (Version None)
Quarter: 2011Q1

REPORT INFORMATION
  Report Type: 
  Country: None (occurrence: None)
  Receive Date: 20110207
  Receipt Date: 20110126
  Transmission Date: 20110831
  Serious: Yes (Hospitalization, Other)
  Sender: FDA-Public Use
  Company Number: US-ELI_LILLY_AND_COMPANY-US201006004760

PATIENT
  Sex: Female

DRUGS (4)
  1. OXYCONTIN [Concomitant]
  2. ARIXTRA [Concomitant]
  3. FORTEO [Suspect]
     Indication: OSTEOPOROSIS
     Dosage: 20 UG, DAILY (1/D)
     Dates: start: 20091001
  4. BACLOFEN [Concomitant]

REACTIONS (2)
  - FALL [None]
  - FEMUR FRACTURE [None]
